FAERS Safety Report 18755534 (Version 1)
Quarter: 2021Q1

REPORT INFORMATION
  Report Type: Spontaneous
  Country: US (occurrence: US)
  Receive Date: 20210115
  Receipt Date: 20210115
  Transmission Date: 20210419
  Serious: Yes (Other)
  Sender: FDA-Public Use
  Company Number: None

PATIENT
  Sex: Female

DRUGS (1)
  1. TACROLIMUS 0.1% OINTMENT [Suspect]
     Active Substance: TACROLIMUS

REACTIONS (2)
  - Eyelid irritation [None]
  - Pruritus [None]
